FAERS Safety Report 14184936 (Version 4)
Quarter: 2017Q4

REPORT INFORMATION
  Report Type: Spontaneous
  Country: US (occurrence: US)
  Receive Date: 20171113
  Receipt Date: 20171228
  Transmission Date: 20180321
  Serious: Yes (Hospitalization)
  Sender: FDA-Public Use
  Company Number: US-PFIZER INC-2017486472

PATIENT
  Age: 64 Year
  Sex: Female
  Weight: 72 kg

DRUGS (2)
  1. ADVIL [Suspect]
     Active Substance: IBUPROFEN
     Indication: BACK PAIN
     Dosage: 400 MG, 4X/DAY
     Route: 048
     Dates: start: 201710, end: 20171106
  2. ADVIL [Suspect]
     Active Substance: IBUPROFEN
     Indication: HEADACHE
     Dosage: 200 MG, 1X/DAY
     Dates: start: 20171006

REACTIONS (6)
  - Sensation of foreign body [Recovered/Resolved]
  - Hypoaesthesia oral [Recovered/Resolved]
  - Product commingling [Recovered/Resolved]
  - Product container issue [Recovered/Resolved]
  - Suspected product tampering [Recovered/Resolved]
  - Poor quality drug administered [Recovered/Resolved]

NARRATIVE: CASE EVENT DATE: 20171106
